FAERS Safety Report 15678161 (Version 1)
Quarter: 2018Q4

REPORT INFORMATION
  Report Type: Spontaneous
  Country: US (occurrence: US)
  Receive Date: 20181201
  Receipt Date: 20181201
  Transmission Date: 20190205
  Serious: No
  Sender: FDA-Public Use
  Company Number: US-TEVA-2018-US-978057

PATIENT
  Sex: Female

DRUGS (1)
  1. LORAZEPAM ACTAVIS [Suspect]
     Active Substance: LORAZEPAM
     Route: 065

REACTIONS (6)
  - Agitation [Unknown]
  - Nausea [Unknown]
  - Insomnia [Unknown]
  - Anxiety [Unknown]
  - Feeling abnormal [Unknown]
  - Drug ineffective [Unknown]
